FAERS Safety Report 6895965-2 (Version None)
Quarter: 2010Q3

REPORT INFORMATION
  Report Type: 
  Country: None (occurrence: None)
  Receive Date: 20100728
  Receipt Date: 20100719
  Transmission Date: 20110219
  Serious: Yes (Other)
  Sender: FDA-Public Use
  Company Number: DSU-2010-02877

PATIENT
  Age: 73 Year
  Sex: Male
  Weight: 64.4108 kg

DRUGS (7)
  1. BENICAR [Suspect]
     Indication: HYPERTENSION
     Dosage: 40 MG (40 MG, QD), PER ORAL,  20 MG (20 MG, /2 OF A 40MG TABLET QD), PER ORAL
     Route: 048
     Dates: start: 20091201, end: 20100618
  2. BENICAR [Suspect]
     Indication: HYPERTENSION
     Dosage: 40 MG (40 MG, QD), PER ORAL,  20 MG (20 MG, /2 OF A 40MG TABLET QD), PER ORAL
     Route: 048
     Dates: start: 20100618
  3. BYSTOLIC (NEBIVOLOL HYDROCHLORIDE)(10 MILLIGRAM)(NEBIVOLOL HYDROCHLORI [Concomitant]
  4. METFORMIN (METFORMIN) (1000 MILLIGRAM) (METFORMIN) [Concomitant]
  5. GLIMEPIRIDE (GLIM#PIRIDE) (4 MILLIGRAM) (GLIMEPIRIDE) [Concomitant]
  6. PLAVIX (CLOPIDOGREL) (75 MILLIGRAM) (CLOPIDOGREL) [Concomitant]
  7. CRESTOR [Concomitant]

REACTIONS (11)
  - BLOOD PRESSURE DECREASED [None]
  - BRAIN OEDEMA [None]
  - CONCUSSION [None]
  - DIZZINESS POSTURAL [None]
  - FATIGUE [None]
  - HEAD INJURY [None]
  - LETHARGY [None]
  - LOSS OF CONSCIOUSNESS [None]
  - PHOTOPHOBIA [None]
  - SKIN LACERATION [None]
  - TEMPERATURE INTOLERANCE [None]
